FAERS Safety Report 8621287-5 (Version None)
Quarter: 2012Q3

REPORT INFORMATION
  Report Type: 
  Country: None (occurrence: None)
  Receive Date: 20120824
  Receipt Date: 20120706
  Transmission Date: 20120928
  Serious: No
  Sender: FDA-Public Use
  Company Number: US-ASTRAZENECA-2012SE40549

PATIENT
  Age: 54 Year
  Sex: Female

DRUGS (5)
  1. NEXIUM [Suspect]
     Route: 048
  2. LAMICTAL [Concomitant]
  3. SEROQUEL XR [Suspect]
     Route: 048
  4. KLONOPIN [Concomitant]
  5. PRISTIQ [Concomitant]

REACTIONS (4)
  - NERVOUSNESS [None]
  - ANXIETY [None]
  - ANXIETY DISORDER [None]
  - GASTROOESOPHAGEAL REFLUX DISEASE [None]
